FAERS Safety Report 11006897 (Version 1)
Quarter: 2015Q2

REPORT INFORMATION
  Report Type: Spontaneous
  Country: US (occurrence: US)
  Receive Date: 20150409
  Receipt Date: 20150409
  Transmission Date: 20150821
  Serious: No
  Sender: FDA-Public Use
  Company Number: US-ALLERGAN-1426554US

PATIENT
  Sex: Female

DRUGS (1)
  1. LATISSE [Suspect]
     Active Substance: BIMATOPROST
     Indication: PRODUCT USED FOR UNKNOWN INDICATION
     Route: 061

REACTIONS (6)
  - Eyelid oedema [Unknown]
  - Lacrimation increased [Unknown]
  - Eyelid sensory disorder [Unknown]
  - Eyelids pruritus [Unknown]
  - Conjunctivitis [Unknown]
  - Eyelid irritation [Unknown]
